FAERS Safety Report 20905985 (Version 1)
Quarter: 2022Q2

REPORT INFORMATION
  Report Type: Spontaneous
  Country: RU (occurrence: None)
  Receive Date: 20220602
  Receipt Date: 20220602
  Transmission Date: 20220721
  Serious: Yes (Other)
  Sender: FDA-Public Use
  Company Number: RU-ROCHE-3103835

PATIENT
  Age: 56 Year
  Sex: Male

DRUGS (2)
  1. ATEZOLIZUMAB [Suspect]
     Active Substance: ATEZOLIZUMAB
     Indication: Non-small cell lung cancer
     Route: 041
     Dates: start: 20200413
  2. BEVACIZUMAB [Suspect]
     Active Substance: BEVACIZUMAB
     Indication: Non-small cell lung cancer
     Route: 041
     Dates: start: 20200413

REACTIONS (16)
  - Mediastinal mass [Unknown]
  - Neoplasm malignant [Unknown]
  - Metastases to oesophagus [Unknown]
  - Metastases to spine [Unknown]
  - Thoracic vertebral fracture [Unknown]
  - Rib fracture [Unknown]
  - Pulmonary fibrosis [Unknown]
  - Spinal osteoarthritis [Unknown]
  - Neoplasm malignant [Unknown]
  - Metastases to adrenals [Unknown]
  - Renal disorder [Unknown]
  - Adrenal adenoma [Unknown]
  - Liver disorder [Unknown]
  - Pancreatic disorder [Unknown]
  - Gallbladder disorder [Unknown]
  - COVID-19 [Unknown]

NARRATIVE: CASE EVENT DATE: 20211101
